FAERS Safety Report 8838319 (Version 1)
Quarter: 2012Q4

REPORT INFORMATION
  Report Type: 
  Country: US (occurrence: US)
  Receive Date: 20121012
  Receipt Date: 20121012
  Transmission Date: 20130627
  Serious: Yes (Other)
  Sender: FDA-Public Use
  Company Number: US-PFIZER INC-2012252419

PATIENT
  Age: 55 Year
  Sex: Male
  Weight: 63.49 kg

DRUGS (5)
  1. RELPAX [Suspect]
     Indication: MIGRAINE
     Dosage: 40 mg just once
     Dates: start: 20121009, end: 20121009
  2. TEGRETOL [Concomitant]
     Indication: BIPOLAR I DISORDER
     Dosage: 200 mg, 4x/day
  3. ZOLOFT [Concomitant]
     Indication: BIPOLAR I DISORDER
     Dosage: 100 mg, daily
  4. DURAGESIC [Concomitant]
     Indication: OSTEONECROSIS
     Dosage: 50 ug, UNK
  5. SINGULAIR [Concomitant]
     Indication: ASTHMA
     Dosage: 10 mg, daily

REACTIONS (5)
  - Hypertension [Recovering/Resolving]
  - Chest pain [Recovering/Resolving]
  - Chest discomfort [Recovering/Resolving]
  - Musculoskeletal discomfort [Recovering/Resolving]
  - Sensation of heaviness [Recovering/Resolving]
